FAERS Safety Report 22252740 (Version 2)
Quarter: 2023Q2

REPORT INFORMATION
  Report Type: Report from Study
  Country: ES (occurrence: ES)
  Receive Date: 20230426
  Receipt Date: 20230609
  Transmission Date: 20230721
  Serious: Yes (Other)
  Sender: FDA-Public Use
  Company Number: ES-CELLTRION INC.-2023ES008311

PATIENT

DRUGS (12)
  1. BEVACIZUMAB [Suspect]
     Active Substance: BEVACIZUMAB
     Indication: Hepatocellular carcinoma
     Dosage: 930 MG
     Route: 065
     Dates: start: 20230208
  2. ATEZOLIZUMAB [Suspect]
     Active Substance: ATEZOLIZUMAB
     Indication: Hepatocellular carcinoma
     Dosage: 1200 MG
     Route: 042
     Dates: start: 20230208
  3. SIMVASTATIN [Concomitant]
     Active Substance: SIMVASTATIN
  4. CEFUROXIME [Concomitant]
     Active Substance: CEFUROXIME
     Dosage: UNK, EVERY 0.5 DAY
     Dates: start: 20230314
  5. OMEPRAZOLE [Concomitant]
     Active Substance: OMEPRAZOLE
  6. FUROSEMIDE [Concomitant]
     Active Substance: FUROSEMIDE
  7. FENTANYL [Concomitant]
     Active Substance: FENTANYL
  8. ACETAMINOPHEN [Concomitant]
     Active Substance: ACETAMINOPHEN
  9. METAMIZOLE [Concomitant]
     Active Substance: METAMIZOLE
  10. LORMETAZEPAM [Concomitant]
     Active Substance: LORMETAZEPAM
  11. ATENOLOL [Concomitant]
     Active Substance: ATENOLOL
  12. DEXAMETHASONE [Concomitant]
     Active Substance: DEXAMETHASONE
     Dosage: UNK, QD
     Dates: start: 20230131, end: 20230210

REACTIONS (2)
  - Device related infection [Recovered/Resolved]
  - Intentional product use issue [Unknown]

NARRATIVE: CASE EVENT DATE: 20230306
